FAERS Safety Report 4922539-2 (Version None)
Quarter: 2006Q1

REPORT INFORMATION
  Report Type: 
  Country: None (occurrence: None)
  Receive Date: 20060223
  Receipt Date: 20060223
  Transmission Date: 20060701
  Serious: No
  Sender: FDA-Public Use
  Company Number: None

PATIENT
  Sex: Male
  Weight: 49.8957 kg

DRUGS (1)
  1. ADDERALL XR 5 [Suspect]
     Indication: ATTENTION DEFICIT/HYPERACTIVITY DISORDER
     Dosage: 5 MG 1 QD PO
     Route: 048
     Dates: start: 20060212

REACTIONS (4)
  - DYSPEPSIA [None]
  - ERUCTATION [None]
  - INSOMNIA [None]
  - ORAL INTAKE REDUCED [None]
